FAERS Safety Report 7341398-4 (Version None)
Quarter: 2011Q1

REPORT INFORMATION
  Report Type: 
  Country: None (occurrence: None)
  Receive Date: 20110309
  Receipt Date: 20110304
  Transmission Date: 20110831
  Serious: Yes (Other)
  Sender: FDA-Public Use
  Company Number: GB-MERCK-1103GBR00032

PATIENT
  Age: 50 Year
  Sex: Female
  Weight: 99 kg

DRUGS (5)
  1. ZOCOR [Suspect]
     Route: 048
     Dates: start: 20110201
  2. AMOXICILLIN [Concomitant]
     Route: 065
     Dates: start: 20101223
  3. ESTRADIOL [Concomitant]
     Route: 065
     Dates: start: 20100809
  4. AMLODIPINE [Concomitant]
     Route: 065
     Dates: start: 20110111
  5. BENDROFLUMETHIAZIDE [Concomitant]
     Route: 065
     Dates: start: 20101005

REACTIONS (2)
  - OEDEMA PERIPHERAL [None]
  - PRURITUS [None]
